FAERS Safety Report 4863600-0 (Version None)
Quarter: 2005Q4

REPORT INFORMATION
  Report Type: 
  Country: None (occurrence: None)
  Receive Date: 20051222
  Receipt Date: 20050517
  Transmission Date: 20060501
  Serious: No
  Sender: FDA-Public Use
  Company Number: US-GLAXOSMITHKLINE-A0558999A

PATIENT
  Age: 48 Year
  Sex: Female

DRUGS (3)
  1. FLONASE [Suspect]
     Dosage: 100MG PER DAY
     Route: 045
     Dates: start: 20050513, end: 20050514
  2. ESTRADIOL INJ [Concomitant]
     Route: 065
  3. VITAMINS [Concomitant]

REACTIONS (1)
  - EPISTAXIS [None]
